FAERS Safety Report 7107122-5 (Version None)
Quarter: 2010Q4

REPORT INFORMATION
  Report Type: 
  Country: None (occurrence: None)
  Receive Date: 20101116
  Receipt Date: 20101008
  Transmission Date: 20110411
  Serious: No
  Sender: FDA-Public Use
  Company Number: US-ABBOTT-10P-163-0677643-00

PATIENT
  Sex: Male
  Weight: 65.83 kg

DRUGS (3)
  1. SIMCOR [Suspect]
     Indication: BLOOD CHOLESTEROL
     Dosage: 500/40, 1 DAILY
  2. FENOFIBRIC ACID [Suspect]
     Indication: BLOOD CHOLESTEROL
  3. PLAVIX [Concomitant]
     Indication: STENT PLACEMENT

REACTIONS (1)
  - MYALGIA [None]
